FAERS Safety Report 8731710 (Version 2)
Quarter: 2013Q1

REPORT INFORMATION
  Report Type: Spontaneous
  Country: US (occurrence: US)
  Receive Date: 20120820
  Receipt Date: 20130321
  Transmission Date: 20140127
  Serious: Yes (Hospitalization, Other)
  Sender: FDA-Public Use
  Company Number: US-PFIZER INC-2012199915

PATIENT
  Age: 85 Year
  Sex: Female

DRUGS (20)
  1. NORVASC [Suspect]
     Dosage: 5 MG, DAILY
     Route: 048
  2. LIPITOR [Suspect]
     Indication: BLOOD CHOLESTEROL
     Dosage: 80 MG,HS
     Route: 048
  3. CARDURA [Suspect]
     Dosage: 4 MG, AT BEDTIME
     Route: 048
  4. PERVENTIL [Concomitant]
     Dosage: UNK
     Route: 055
  5. FLOVENT [Concomitant]
     Dosage: 2 PUFFS
     Route: 055
  6. LASIX [Concomitant]
     Indication: OEDEMA
     Dosage: 40 MG, 1X/DAY
  7. KLOR-CON [Concomitant]
     Indication: MINERAL SUPPLEMENTATION
     Dosage: UNK
  8. AMLODIPINE [Concomitant]
     Indication: BLOOD PRESSURE
     Dosage: 5 MG, 1X/DAY
  9. MUCINEX [Concomitant]
     Dosage: UNK
  10. PACERONE [Concomitant]
     Indication: CARDIAC DISORDER
     Dosage: 200 MG, TABS DAILY AND MORNING 1/2 PER DAY
  11. CALCIUM+VITD [Concomitant]
     Dosage: UNK
  12. DIGOXIN [Concomitant]
     Indication: CARDIAC DISORDER
     Dosage: 0.125 MG, 1X/DAY
  13. FERROUS SULFATE [Concomitant]
     Indication: MINERAL SUPPLEMENTATION
     Dosage: 325 MG, 1X/DAY
  14. COZAAR [Concomitant]
     Indication: CARDIAC DISORDER
     Dosage: 100 MG, 1X/DAY
  15. LOPRESSOR [Concomitant]
     Indication: BLOOD PRESSURE
     Dosage: 50 MG, 2X/DAY
  16. SINGULAIR [Concomitant]
     Dosage: 10 MG, 1X/DAY
  17. PRILOSEC [Concomitant]
     Indication: ANTACID THERAPY
     Dosage: 20 MG, ONE-TWO TABS DAILY
  18. PRADAXA [Concomitant]
     Indication: ANTICOAGULANT THERAPY
     Dosage: 75 MG, 2X/DAY
  19. MULTIVITAMINS [Concomitant]
     Dosage: 1 DF, 1X/DAY
  20. ANTACIL [Concomitant]

REACTIONS (1)
  - Transient ischaemic attack [Unknown]
